FAERS Safety Report 6254073-4 (Version None)
Quarter: 2009Q2

REPORT INFORMATION
  Report Type: 
  Country: None (occurrence: None)
  Receive Date: 20090630
  Receipt Date: 20090630
  Transmission Date: 20091009
  Serious: Yes (Other)
  Sender: FDA-Public Use
  Company Number: None

PATIENT
  Age: 61 Year
  Sex: Female
  Weight: 79.8331 kg

DRUGS (2)
  1. SAVELLA [Suspect]
     Indication: FIBROMYALGIA
     Dosage: 12.5 MG, 25 MG TWICE A DAY PO
     Route: 048
     Dates: start: 20090610, end: 20090615
  2. SAVELLA [Suspect]
     Indication: FIBROMYALGIA
     Dosage: 50 MG TWICE A DAY PO
     Route: 048
     Dates: start: 20090616, end: 20090629

REACTIONS (7)
  - BLOOD PRESSURE INCREASED [None]
  - FLUSHING [None]
  - HEADACHE [None]
  - HEART RATE INCREASED [None]
  - HOT FLUSH [None]
  - HYPERHIDROSIS [None]
  - NIGHT SWEATS [None]
